FAERS Safety Report 11844286 (Version 2)
Quarter: 2015Q4

REPORT INFORMATION
  Report Type: Spontaneous
  Country: RO (occurrence: RO)
  Receive Date: 20151217
  Receipt Date: 20151217
  Transmission Date: 20160305
  Serious: Yes (Other)
  Sender: FDA-Public Use
  Company Number: RO-ACTAVIS-2015-27666

PATIENT
  Age: 58 Year
  Sex: Female

DRUGS (13)
  1. TAMOXIFEN (UNKNOWN) [Suspect]
     Active Substance: TAMOXIFEN
     Indication: BREAST CANCER STAGE II
     Dosage: UNK
     Route: 065
  2. FLUOROURACIL. [Suspect]
     Active Substance: FLUOROURACIL
     Indication: METASTASES TO LUNG
     Dosage: 6970 MG/M2, TOTAL
     Route: 065
     Dates: start: 201401, end: 201408
  3. FLUTICASONE PROPIONATE. [Concomitant]
     Active Substance: FLUTICASONE PROPIONATE
     Dosage: UNK
     Route: 065
  4. CYCLOPHOSPHAMIDE (UNKNOWN) [Suspect]
     Active Substance: CYCLOPHOSPHAMIDE
     Indication: BREAST CANCER STAGE II
     Dosage: 3270 MG/M2, TOTAL (4 CYCLES OF FEC)
     Route: 065
     Dates: start: 201401, end: 201408
  5. CYCLOPHOSPHAMIDE (UNKNOWN) [Suspect]
     Active Substance: CYCLOPHOSPHAMIDE
     Dosage: 1600 MG/M2, TOTAL (2 CYCLES OF AC)
     Route: 065
     Dates: start: 201401, end: 201408
  6. DOCETAXEL (UNKNOWN) [Suspect]
     Active Substance: DOCETAXEL
     Indication: METASTASES TO LUNG
     Dosage: 167 MG/M2, TOTAL (2 CYCLES OF TAC)
     Route: 065
     Dates: start: 201401, end: 201408
  7. DOXORUBICIN (UNKNOWN) [Suspect]
     Active Substance: DOXORUBICIN
     Dosage: 70 MG/M2, TOTAL (2 CYCLES OF TAC)
     Route: 065
     Dates: start: 201401, end: 201408
  8. SALMETEROL [Concomitant]
     Active Substance: SALMETEROL
     Indication: ASTHMA
     Dosage: UNK
     Route: 065
  9. CYCLOPHOSPHAMIDE (UNKNOWN) [Suspect]
     Active Substance: CYCLOPHOSPHAMIDE
     Indication: METASTASES TO LUNG
     Dosage: 2400 MG/M2, TOTAL (4 CYCLES)
     Route: 065
  10. CYCLOPHOSPHAMIDE (UNKNOWN) [Suspect]
     Active Substance: CYCLOPHOSPHAMIDE
     Dosage: 1600 MG/M2, TOTAL (2 CYCLES 0F TAC)
     Route: 065
     Dates: start: 201401, end: 201408
  11. DOXORUBICIN (UNKNOWN) [Suspect]
     Active Substance: DOXORUBICIN
     Indication: METASTASES TO LUNG
     Dosage: 70 MG/M2, TOTAL (2 CYCLES OF AC)
     Route: 065
     Dates: start: 201401, end: 201408
  12. EPIRUBICIN (UNKNOWN) [Suspect]
     Active Substance: EPIRUBICIN
     Indication: METASTASES TO LUNG
     Dosage: 240 MG/M2, TOTAL (4 CYCLES)
     Route: 065
  13. EPIRUBICIN (UNKNOWN) [Suspect]
     Active Substance: EPIRUBICIN
     Indication: BREAST CANCER STAGE II
     Dosage: 488 MG/M2, TOTAL (4 CYCLES OF FEC)
     Route: 065
     Dates: start: 201401, end: 201408

REACTIONS (4)
  - Cardiac ventricular thrombosis [Recovered/Resolved]
  - Cardiac failure [Recovering/Resolving]
  - Cardiomyopathy [Recovering/Resolving]
  - Bundle branch block left [Recovered/Resolved]

NARRATIVE: CASE EVENT DATE: 201410
